FAERS Safety Report 18315498 (Version 1)
Quarter: 2020Q3

REPORT INFORMATION
  Report Type: Spontaneous
  Country: PL (occurrence: PL)
  Receive Date: 20200926
  Receipt Date: 20200926
  Transmission Date: 20201103
  Serious: Yes (Hospitalization, Other)
  Sender: FDA-Public Use
  Company Number: PL-MICRO LABS LIMITED-ML2020-02912

PATIENT

DRUGS (4)
  1. AMLODIPINE [Suspect]
     Active Substance: AMLODIPINE BESYLATE
  2. EPLERENONE. [Suspect]
     Active Substance: EPLERENONE
     Indication: CHORIORETINOPATHY
  3. ATORVASTATIN [Suspect]
     Active Substance: ATORVASTATIN
     Indication: HYPERCHOLESTEROLAEMIA
  4. INDAPAMIDE. [Suspect]
     Active Substance: INDAPAMIDE

REACTIONS (2)
  - Chorioretinopathy [Recovering/Resolving]
  - Drug interaction [Unknown]
